FAERS Safety Report 5287273-0 (Version None)
Quarter: 2007Q2

REPORT INFORMATION
  Report Type: 
  Country: None (occurrence: None)
  Receive Date: 20070404
  Receipt Date: 20070327
  Transmission Date: 20071010
  Serious: Yes (Other)
  Sender: FDA-Public Use
  Company Number: GB-PFIZER INC-2007024855

PATIENT
  Age: 37 Year
  Sex: Female
  Weight: 86 kg

DRUGS (2)
  1. FLUCONAZOLE [Suspect]
     Route: 048
  2. CLOTRIMAZOLE [Suspect]
     Route: 061

REACTIONS (1)
  - ABORTION SPONTANEOUS [None]
